FAERS Safety Report 11361293 (Version 2)
Quarter: 2015Q3

REPORT INFORMATION
  Report Type: Spontaneous
  Country: US (occurrence: US)
  Receive Date: 20150810
  Receipt Date: 20150817
  Transmission Date: 20151125
  Serious: Yes (Other)
  Sender: FDA-Public Use
  Company Number: CHPA2015US009321

PATIENT
  Sex: Female

DRUGS (1)
  1. VOLTAREN [Suspect]
     Active Substance: DICLOFENAC SODIUM
     Indication: MUSCLE STRAIN
     Dosage: UNK
     Route: 065
     Dates: start: 2010

REACTIONS (4)
  - Spondylitis [Unknown]
  - Product use issue [Unknown]
  - Arthritis [Unknown]
  - Drug administered at inappropriate site [Unknown]
